FAERS Safety Report 9252084 (Version 1)
Quarter: 2013Q2

REPORT INFORMATION
  Report Type: Spontaneous
  Country: SG (occurrence: SG)
  Receive Date: 20130424
  Receipt Date: 20130424
  Transmission Date: 20140414
  Serious: Yes (Other)
  Sender: FDA-Public Use
  Company Number: SG-BAYER-2013-050888

PATIENT
  Age: 46 Year
  Sex: Male

DRUGS (1)
  1. NIFEDIPINE [Suspect]

REACTIONS (1)
  - Gingival swelling [Unknown]
